FAERS Safety Report 4624181-X (Version None)
Quarter: 2005Q1

REPORT INFORMATION
  Report Type: 
  Country: None (occurrence: None)
  Receive Date: 20050331
  Receipt Date: 20050325
  Transmission Date: 20050727
  Serious: Yes (Death, Hospitalization)
  Sender: FDA-Public Use
  Company Number: FR-GLAXOSMITHKLINE-B0375932A

PATIENT
  Age: 49 Year
  Sex: Male
  Weight: 70 kg

DRUGS (4)
  1. AGENERASE [Suspect]
     Indication: HIV INFECTION
     Route: 048
     Dates: start: 20020515, end: 20030228
  2. VIDEX [Suspect]
     Indication: HIV INFECTION
     Dosage: 400MG PER DAY
     Route: 048
     Dates: start: 20021209, end: 20030228
  3. NORVIR [Suspect]
     Indication: HIV INFECTION
     Dosage: 200MG PER DAY
     Route: 048
     Dates: start: 20020515, end: 20030228
  4. ZERIT [Suspect]
     Indication: HIV INFECTION
     Dosage: 80MG PER DAY
     Route: 048
     Dates: start: 20021209, end: 20030228

REACTIONS (29)
  - BILIRUBIN CONJUGATED INCREASED [None]
  - BLOOD ALKALINE PHOSPHATASE INCREASED [None]
  - BLOOD BILIRUBIN INCREASED [None]
  - CIRCULATORY COLLAPSE [None]
  - DEATH [None]
  - DEHYDRATION [None]
  - DIARRHOEA [None]
  - EXTRAPYRAMIDAL DISORDER [None]
  - FOETOR HEPATICUS [None]
  - GAMMA-GLUTAMYLTRANSFERASE INCREASED [None]
  - GENERAL PHYSICAL HEALTH DETERIORATION [None]
  - HEPATITIS CHOLESTATIC [None]
  - HEPATOCELLULAR DAMAGE [None]
  - HYPERLACTACIDAEMIA [None]
  - HYPOVOLAEMIA [None]
  - ILL-DEFINED DISORDER [None]
  - JAUNDICE [None]
  - KUSSMAUL RESPIRATION [None]
  - MULTI-ORGAN FAILURE [None]
  - OEDEMA PERIPHERAL [None]
  - ORAL CANDIDIASIS [None]
  - PNEUMONIA STAPHYLOCOCCAL [None]
  - PROTHROMBIN LEVEL DECREASED [None]
  - PULMONARY FUNCTION TEST DECREASED [None]
  - PYREXIA [None]
  - RENAL FAILURE [None]
  - SEPTIC SHOCK [None]
  - SKIN DISCOLOURATION [None]
  - VOMITING [None]
